FAERS Safety Report 10369582 (Version 1)
Quarter: 2014Q3

REPORT INFORMATION
  Report Type: Spontaneous
  Country: US (occurrence: US)
  Receive Date: 20140807
  Receipt Date: 20140807
  Transmission Date: 20150326
  Serious: No
  Sender: FDA-Public Use
  Company Number: US-AMGEN-USASP2014021236

PATIENT
  Sex: Female

DRUGS (11)
  1. KYTRIL [Concomitant]
     Active Substance: GRANISETRON HYDROCHLORIDE
     Dosage: 1000 MG, UNK
     Route: 042
     Dates: start: 20120301, end: 20120301
  2. PACLITAXEL. [Concomitant]
     Active Substance: PACLITAXEL
     Dosage: 160 MG, UNK
     Route: 042
     Dates: start: 20120301, end: 20120301
  3. BENADRYL [Concomitant]
     Active Substance: DIPHENHYDRAMINE HYDROCHLORIDE
     Dosage: 125 MG, UNK
     Route: 042
     Dates: start: 20120223, end: 20120223
  4. NEUPOGEN [Suspect]
     Active Substance: FILGRASTIM
     Indication: BREAST CANCER
     Dosage: 480 MG, UNK
     Route: 058
     Dates: start: 20120301, end: 20120301
  5. HERCEPTIN [Suspect]
     Active Substance: TRASTUZUMAB
     Indication: BREAST CANCER
     Dosage: 184 MG, UNK
     Route: 042
     Dates: start: 20120301, end: 20120301
  6. DECADRON [Concomitant]
     Active Substance: DEXAMETHASONE
     Dosage: 5 MG, UNK
     Route: 042
     Dates: start: 20120223, end: 20120223
  7. TYLENOL [Concomitant]
     Active Substance: ACETAMINOPHEN
     Dosage: 650 MG, UNK
     Route: 048
     Dates: start: 20120301, end: 20120301
  8. PEPCID [Concomitant]
     Active Substance: FAMOTIDINE
     Dosage: 20 MG, UNK
     Route: 042
     Dates: start: 20120301, end: 20120301
  9. TYLENOL [Concomitant]
     Active Substance: ACETAMINOPHEN
     Dosage: POST ORAL
     Dates: start: 20120223, end: 20120223
  10. CARAFATE [Concomitant]
     Active Substance: SUCRALFATE
     Dosage: 2 MG, UNK
     Route: 042
     Dates: start: 20120301
  11. DECADRON [Concomitant]
     Active Substance: DEXAMETHASONE
     Dosage: 5 MG, UNK
     Route: 042
     Dates: start: 20120301, end: 20120301

REACTIONS (6)
  - Constipation [Unknown]
  - Rash [Unknown]
  - Arthralgia [Unknown]
  - Asthenia [Unknown]
  - Dyspnoea [Unknown]
  - Fatigue [Unknown]
